FAERS Safety Report 7105876-5 (Version None)
Quarter: 2010Q4

REPORT INFORMATION
  Report Type: 
  Country: None (occurrence: None)
  Receive Date: 20101116
  Receipt Date: 20101105
  Transmission Date: 20110411
  Serious: Yes (Life-Threatening, Hospitalization, Disabling, Other)
  Sender: FDA-Public Use
  Company Number: A0887858A

PATIENT
  Age: 60 Year
  Sex: Female
  Weight: 67 kg

DRUGS (10)
  1. ARIXTRA [Suspect]
     Indication: FACTOR V LEIDEN MUTATION
     Route: 058
  2. CRESTOR [Suspect]
     Route: 065
  3. ANTIHYPERTENSIVES [Suspect]
     Route: 065
  4. BENICAR [Suspect]
     Indication: FACTOR V DEFICIENCY
     Route: 065
  5. VALIUM [Concomitant]
  6. FOSAMAX [Concomitant]
  7. UNSPECIFIED MEDICATION [Concomitant]
  8. PHYSICAL THERAPY [Concomitant]
  9. ASPIRIN [Concomitant]
     Indication: FACTOR V DEFICIENCY
  10. MULTIPLE MEDICATIONS [Concomitant]

REACTIONS (23)
  - ANAEMIA [None]
  - BACTERIURIA [None]
  - BLOOD CREATINE PHOSPHOKINASE INCREASED [None]
  - BLOOD CREATININE INCREASED [None]
  - BLOOD UREA INCREASED [None]
  - CONTUSION [None]
  - FALL [None]
  - HAEMATOMA [None]
  - HAEMOGLOBIN DECREASED [None]
  - HAEMORRHAGE [None]
  - HEART RATE INCREASED [None]
  - HYPOTENSION [None]
  - HYPOVOLAEMIA [None]
  - INJURY [None]
  - LABORATORY TEST ABNORMAL [None]
  - LEUKOCYTOSIS [None]
  - MASS [None]
  - NEPHROCALCINOSIS [None]
  - NEPHROLITHIASIS [None]
  - RENAL FAILURE ACUTE [None]
  - RENAL SCAN ABNORMAL [None]
  - SPEECH DISORDER [None]
  - TACHYCARDIA [None]
